FAERS Safety Report 8235738-1 (Version None)
Quarter: 2012Q1

REPORT INFORMATION
  Report Type: 
  Country: None (occurrence: None)
  Receive Date: 20120326
  Receipt Date: 20120322
  Transmission Date: 20120608
  Serious: Yes (Death, Hospitalization)
  Sender: FDA-Public Use
  Company Number: PHHY2011FR92478

PATIENT
  Sex: Male

DRUGS (1)
  1. EXJADE [Suspect]
     Indication: HAEMOSIDEROSIS
     Dosage: 1500 MG, DAILY
     Dates: start: 20080206, end: 20110401

REACTIONS (5)
  - NEOPLASM PROGRESSION [None]
  - NEOPLASM MALIGNANT [None]
  - GENERAL PHYSICAL HEALTH DETERIORATION [None]
  - METASTASES TO PERITONEUM [None]
  - ASCITES [None]
